FAERS Safety Report 11247366 (Version 1)
Quarter: 2015Q3

REPORT INFORMATION
  Report Type: Spontaneous
  Country: US (occurrence: None)
  Receive Date: 20150706
  Receipt Date: 20150706
  Transmission Date: 20151125
  Serious: Yes (Disabling)
  Sender: FDA-Public Use
  Company Number: None

PATIENT
  Age: 42 Year
  Sex: Female
  Weight: 68.04 kg

DRUGS (3)
  1. KROGER CHILDRENS CHEWABLE MULTI WITH EXTRA C [Concomitant]
  2. CIPROFLOXACIN HCL 500MG ACTAVIS PHARMA [Suspect]
     Active Substance: CIPROFLOXACIN HYDROCHLORIDE
     Indication: URINARY TRACT INFECTION
     Route: 048
     Dates: start: 20150606, end: 20150607
  3. ALPRAZOLAM. [Concomitant]
     Active Substance: ALPRAZOLAM

REACTIONS (31)
  - Spinal pain [None]
  - Ocular discomfort [None]
  - Mental disorder [None]
  - Arthralgia [None]
  - Balance disorder [None]
  - Muscle spasms [None]
  - Photopsia [None]
  - Memory impairment [None]
  - Pain in extremity [None]
  - Muscle twitching [None]
  - Paranasal sinus discomfort [None]
  - Anxiety [None]
  - Dizziness [None]
  - Dysstasia [None]
  - Impaired driving ability [None]
  - Asthenia [None]
  - Neuropathy peripheral [None]
  - Feeling abnormal [None]
  - Gait disturbance [None]
  - Discomfort [None]
  - Similar reaction on previous exposure to drug [None]
  - Tremor [None]
  - Depression [None]
  - Vision blurred [None]
  - Disturbance in attention [None]
  - Ear discomfort [None]
  - Muscle disorder [None]
  - Therapy change [None]
  - Neck pain [None]
  - Dyskinesia [None]
  - Impaired self-care [None]

NARRATIVE: CASE EVENT DATE: 20150606
